FAERS Safety Report 5472934-0 (Version None)
Quarter: 2007Q4

REPORT INFORMATION
  Report Type: 
  Country: None (occurrence: None)
  Receive Date: 20071001
  Receipt Date: 20061219
  Transmission Date: 20080405
  Serious: Yes (Other)
  Sender: FDA-Public Use
  Company Number: US-ASTRAZENECA-2006UW28244

PATIENT
  Age: 88 Year
  Sex: Female
  Weight: 55.3 kg

DRUGS (4)
  1. ARIMIDEX [Suspect]
     Indication: BREAST CANCER
     Route: 048
  2. VITAMINS [Concomitant]
  3. BETOPTIC [Concomitant]
  4. ASOPT [Concomitant]

REACTIONS (2)
  - PAIN IN EXTREMITY [None]
  - TOOTH INFECTION [None]
